FAERS Safety Report 20782095 (Version 2)
Quarter: 2022Q2

REPORT INFORMATION
  Report Type: Spontaneous
  Country: US (occurrence: US)
  Receive Date: 20220504
  Receipt Date: 20220621
  Transmission Date: 20220720
  Serious: No
  Sender: FDA-Public Use
  Company Number: US-BRISTOL-MYERS SQUIBB COMPANY-2022-019440

PATIENT
  Age: 74 Year
  Sex: Female

DRUGS (2)
  1. REVLIMID [Suspect]
     Active Substance: LENALIDOMIDE
     Indication: Benign neoplasm
     Route: 048
     Dates: start: 20220321
  2. REVLIMID [Suspect]
     Active Substance: LENALIDOMIDE
     Indication: Myelodysplastic syndrome

REACTIONS (6)
  - Product dose omission issue [Unknown]
  - Myalgia [Unknown]
  - Haemoglobin decreased [Unknown]
  - Pruritus [Unknown]
  - Intentional product use issue [Unknown]
  - Adverse drug reaction [Unknown]
